FAERS Safety Report 25265850 (Version 1)
Quarter: 2025Q2

REPORT INFORMATION
  Report Type: Spontaneous
  Country: IL (occurrence: IL)
  Receive Date: 20250503
  Receipt Date: 20250503
  Transmission Date: 20250717
  Serious: Yes (Other)
  Sender: OXFORD PHARMACEUTICALS, LLC
  Company Number: IL-Oxford Pharmaceuticals, LLC-2176098

PATIENT
  Age: 31 Year
  Sex: Male

DRUGS (5)
  1. LEVETIRACETAM [Suspect]
     Active Substance: LEVETIRACETAM
     Indication: Epilepsy
  2. PHENYTOIN [Concomitant]
     Active Substance: PHENYTOIN
  3. OXCARBAZEPINE [Concomitant]
     Active Substance: OXCARBAZEPINE
  4. TOPAMAX [Concomitant]
     Active Substance: TOPIRAMATE
  5. CARBAMAZEPINE [Concomitant]
     Active Substance: CARBAMAZEPINE

REACTIONS (3)
  - Seizure [Unknown]
  - Drug ineffective [Unknown]
  - Condition aggravated [Unknown]
